FAERS Safety Report 22212567 (Version 1)
Quarter: 2023Q2

REPORT INFORMATION
  Report Type: Spontaneous
  Country: FR (occurrence: FR)
  Receive Date: 20230414
  Receipt Date: 20230414
  Transmission Date: 20230721
  Serious: Yes (Life-Threatening, Hospitalization)
  Sender: FDA-Public Use
  Company Number: FR-AstraZeneca-2023A043701

PATIENT
  Age: 70 Year
  Sex: Male
  Weight: 68 kg

DRUGS (12)
  1. PACLITAXEL [Suspect]
     Active Substance: PACLITAXEL
     Indication: Non-small cell lung cancer
     Dosage: 357MG
     Dates: start: 20230208, end: 20230208
  2. PACLITAXEL [Suspect]
     Active Substance: PACLITAXEL
     Dosage: 357MG
     Dates: start: 20221228, end: 20221228
  3. PACLITAXEL [Suspect]
     Active Substance: PACLITAXEL
     Dosage: 357MG
     Dates: start: 20230118, end: 20230118
  4. CARBOPLATIN [Suspect]
     Active Substance: CARBOPLATIN
     Indication: Non-small cell lung cancer
     Dosage: 840MG
     Dates: start: 20230118, end: 20230118
  5. CARBOPLATIN [Suspect]
     Active Substance: CARBOPLATIN
     Dosage: 965MG
     Dates: start: 20230208, end: 20230208
  6. CARBOPLATIN [Suspect]
     Active Substance: CARBOPLATIN
     Dosage: 755MG
     Dates: start: 20221228, end: 20221228
  7. OLECLUMAB [Suspect]
     Active Substance: OLECLUMAB
     Indication: Non-small cell lung cancer
     Dosage: 3000MG
     Route: 042
     Dates: start: 20230118, end: 20230118
  8. OLECLUMAB [Suspect]
     Active Substance: OLECLUMAB
     Dosage: 3000MG
     Route: 042
     Dates: start: 20230208, end: 20230208
  9. OLECLUMAB [Suspect]
     Active Substance: OLECLUMAB
     Dosage: 3000MG
     Route: 042
     Dates: start: 20221228, end: 20221228
  10. DURVALUMAB [Suspect]
     Active Substance: DURVALUMAB
     Indication: Non-small cell lung cancer
     Dosage: 1500MG
     Route: 042
     Dates: start: 20230118, end: 20230118
  11. DURVALUMAB [Suspect]
     Active Substance: DURVALUMAB
     Dosage: 1500MG
     Route: 042
     Dates: start: 20230208, end: 20230208
  12. DURVALUMAB [Suspect]
     Active Substance: DURVALUMAB
     Dosage: 1500MG
     Route: 042
     Dates: start: 20221228, end: 20221228

REACTIONS (2)
  - Hypokalaemia [Recovered/Resolved]
  - Aplasia [Recovered/Resolved]

NARRATIVE: CASE EVENT DATE: 20230214
